FAERS Safety Report 6182887-8 (Version None)
Quarter: 2009Q2

REPORT INFORMATION
  Report Type: 
  Country: None (occurrence: None)
  Receive Date: 20090505
  Receipt Date: 20090424
  Transmission Date: 20091009
  Serious: Yes (Other)
  Sender: FDA-Public Use
  Company Number: GXKR2009HR05060

PATIENT
  Age: 55 Year
  Sex: Male

DRUGS (5)
  1. SIMVASTATIN [Suspect]
     Indication: DYSLIPIDAEMIA
  2. STEROIDS NOS (NO INGREDIENTS/SUBSTANCES) [Suspect]
     Indication: IMMUNOSUPPRESSION
  3. DACLIZUMAB (DACLIZUMAB) [Concomitant]
  4. CYCLOSPORINE [Concomitant]
  5. MYCOPHENOLATE MOFETIL [Concomitant]

REACTIONS (2)
  - BLOOD ALKALINE PHOSPHATASE INCREASED [None]
  - TENDON RUPTURE [None]
